FAERS Safety Report 4806229-2 (Version None)
Quarter: 2005Q4

REPORT INFORMATION
  Report Type: 
  Country: None (occurrence: None)
  Receive Date: 20051021
  Receipt Date: 20050701
  Transmission Date: 20060501
  Serious: Yes (Hospitalization)
  Sender: FDA-Public Use
  Company Number: US-MERCK-0507USA00480

PATIENT
  Age: 54 Year
  Sex: Male
  Weight: 93 kg

DRUGS (5)
  1. VIOXX [Suspect]
     Indication: JOINT SWELLING
     Route: 048
     Dates: start: 20000101, end: 20010101
  2. VIOXX [Suspect]
     Indication: PAIN
     Route: 048
     Dates: start: 20000101, end: 20010101
  3. [THERAPY UNSPECIFIED] [Concomitant]
     Route: 065
  4. NORVASC [Concomitant]
     Route: 065
     Dates: start: 19850101, end: 20020101
  5. PROCARDIA [Concomitant]
     Route: 065
     Dates: start: 19850101, end: 20020101

REACTIONS (12)
  - ALCOHOLISM [None]
  - ARTERIOSCLEROSIS [None]
  - CARDIAC DISORDER [None]
  - DEEP VEIN THROMBOSIS [None]
  - GASTROOESOPHAGEAL REFLUX DISEASE [None]
  - HYPERTENSION [None]
  - INJURY [None]
  - MYOCARDIAL INFARCTION [None]
  - PEPTIC ULCER [None]
  - RENAL DISORDER [None]
  - RHEUMATOID ARTHRITIS [None]
  - SLEEP APNOEA SYNDROME [None]
